FAERS Safety Report 22313854 (Version 9)
Quarter: 2025Q4

REPORT INFORMATION
  Report Type: Spontaneous
  Country: CA (occurrence: CA)
  Receive Date: 20230512
  Receipt Date: 20251208
  Transmission Date: 20260118
  Serious: No
  Sender: PFIZER
  Company Number: CA-PFIZER INC-202300109612

PATIENT
  Age: 34 Year
  Sex: Female

DRUGS (2)
  1. ABRILADA [Suspect]
     Active Substance: ADALIMUMAB-AFZB
     Indication: Psoriatic arthropathy
     Dosage: 40 MG, EVERY 2 WEEKS
     Route: 058
     Dates: start: 20221123, end: 2024
  2. ABRILADA [Suspect]
     Active Substance: ADALIMUMAB-AFZB
     Dosage: 40 MG, EVERY 10 DAYS
     Dates: start: 2025

REACTIONS (5)
  - Drug ineffective [Unknown]
  - Pain [Not Recovered/Not Resolved]
  - Drug dose omission by device [Unknown]
  - Device mechanical issue [Unknown]
  - Off label use [Unknown]

NARRATIVE: CASE EVENT DATE: 20230101
